FAERS Safety Report 4687961-0 (Version None)
Quarter: 2005Q2

REPORT INFORMATION
  Report Type: 
  Country: None (occurrence: None)
  Receive Date: 20050608
  Receipt Date: 20050516
  Transmission Date: 20051028
  Serious: Yes (Death, Life-Threatening, Hospitalization)
  Sender: FDA-Public Use
  Company Number: 200504196

PATIENT
  Age: 82 Year
  Sex: Male
  Weight: 56 kg

DRUGS (9)
  1. BOTOX [Suspect]
     Indication: DROOLING
     Dosage: 100 UNITS ONCE; IM
     Route: 030
     Dates: start: 20050114, end: 20050114
  2. SYNTHROID [Concomitant]
  3. FOSAMAX [Concomitant]
  4. VITAMIN E [Concomitant]
  5. IBUPROFEN [Concomitant]
  6. CLARITIN [Concomitant]
  7. CALTRATE [Concomitant]
  8. CITRICAL [Concomitant]
  9. AMANTADINE [Concomitant]

REACTIONS (5)
  - ASPIRATION [None]
  - DYSPHAGIA [None]
  - POST PROCEDURAL COMPLICATION [None]
  - RESPIRATORY FAILURE [None]
  - VOMITING [None]
